FAERS Safety Report 6419514-8 (Version None)
Quarter: 2009Q4

REPORT INFORMATION
  Report Type: 
  Country: None (occurrence: None)
  Receive Date: 20091029
  Receipt Date: 20091017
  Transmission Date: 20100525
  Serious: Yes (Hospitalization, Other)
  Sender: FDA-Public Use
  Company Number: US-PFIZER INC-2009263469

PATIENT

DRUGS (1)
  1. SUTENT [Suspect]

REACTIONS (1)
  - DYSPHAGIA [None]
